FAERS Safety Report 24752601 (Version 2)
Quarter: 2025Q1

REPORT INFORMATION
  Report Type: Spontaneous
  Country: US (occurrence: US)
  Receive Date: 20241219
  Receipt Date: 20250113
  Transmission Date: 20250409
  Serious: No
  Sender: ALEXION PHARMACEUTICALS
  Company Number: US-AstraZeneca-CH-00767970A

PATIENT

DRUGS (6)
  1. STRENSIQ [Suspect]
     Active Substance: ASFOTASE ALFA
     Indication: Hypophosphatasia
  2. STRENSIQ [Suspect]
     Active Substance: ASFOTASE ALFA
     Route: 058
  3. STRENSIQ [Suspect]
     Active Substance: ASFOTASE ALFA
  4. STRENSIQ [Suspect]
     Active Substance: ASFOTASE ALFA
     Route: 058
  5. HUMIRA [Concomitant]
     Active Substance: ADALIMUMAB
     Route: 065
  6. HUMIRA [Concomitant]
     Active Substance: ADALIMUMAB
     Route: 065

REACTIONS (1)
  - Blood alkaline phosphatase decreased [Recovered/Resolved]
